FAERS Safety Report 17085612 (Version 2)
Quarter: 2020Q1

REPORT INFORMATION
  Report Type: Report from Study
  Country: US (occurrence: US)
  Receive Date: 20191128
  Receipt Date: 20200217
  Transmission Date: 20200409
  Serious: No
  Sender: FDA-Public Use
  Company Number: NVSC2019US051192

PATIENT
  Age: 68 Year
  Sex: Male

DRUGS (3)
  1. POTASSIUM [Suspect]
     Active Substance: POTASSIUM
     Indication: PRODUCT USED FOR UNKNOWN INDICATION
     Route: 065
  2. ENTRESTO [Suspect]
     Active Substance: SACUBITRIL\VALSARTAN
     Indication: CARDIAC FAILURE
     Dosage: 1 DF (49/51 MG), BID
     Route: 065
     Dates: start: 201908
  3. ENTRESTO [Suspect]
     Active Substance: SACUBITRIL\VALSARTAN
     Dosage: 50 MG, BID(24/26 MG)
     Route: 065

REACTIONS (2)
  - Blood creatinine increased [Unknown]
  - Blister [Recovering/Resolving]

NARRATIVE: CASE EVENT DATE: 201909
